FAERS Safety Report 11337499 (Version 1)
Quarter: 2015Q3

REPORT INFORMATION
  Report Type: Spontaneous
  Country: US (occurrence: US)
  Receive Date: 20150803
  Receipt Date: 20150803
  Transmission Date: 20151125
  Serious: No
  Sender: FDA-Public Use
  Company Number: US-ELI_LILLY_AND_COMPANY-US200608000483

PATIENT
  Age: 29 Year
  Sex: Male
  Weight: 100.68 kg

DRUGS (11)
  1. LOPRESSOR [Concomitant]
     Active Substance: METOPROLOL TARTRATE
     Indication: HYPERTENSION
     Route: 048
     Dates: start: 2000
  2. TOPROL XL [Concomitant]
     Active Substance: METOPROLOL SUCCINATE
     Dosage: 100 MG, DAILY (1/D)
  3. ALLOPURINOL. [Concomitant]
     Active Substance: ALLOPURINOL
     Dosage: 300 MG, DAILY (1/D)
  4. ESTAZOLAM. [Concomitant]
     Active Substance: ESTAZOLAM
     Indication: INSOMNIA
     Dosage: 1 MG, EACH EVENING
  5. ZYPREXA [Suspect]
     Active Substance: OLANZAPINE
     Dosage: 7.5 MG, UNK
     Dates: start: 20030206
  6. ZYPREXA [Suspect]
     Active Substance: OLANZAPINE
     Dosage: 10 MG, UNK
     Route: 048
     Dates: start: 20000110, end: 20010627
  7. ZYPREXA [Suspect]
     Active Substance: OLANZAPINE
     Dosage: 5 MG, UNK
     Route: 048
     Dates: start: 19990113, end: 20000110
  8. ZYPREXA [Suspect]
     Active Substance: OLANZAPINE
     Dosage: 15 MG, UNK
     Route: 048
     Dates: start: 20010627, end: 20020827
  9. ZYPREXA [Suspect]
     Active Substance: OLANZAPINE
     Dosage: 10 MG, UNK
     Route: 048
     Dates: start: 20020827, end: 20030305
  10. RISPERDAL                               /SWE/ [Concomitant]
     Route: 048
     Dates: start: 199810, end: 199901
  11. RISPERDAL                               /SWE/ [Concomitant]
     Route: 048
     Dates: start: 200302, end: 200311

REACTIONS (9)
  - Nasopharyngitis [Recovered/Resolved]
  - Weight increased [Unknown]
  - Lower respiratory tract infection [Recovered/Resolved]
  - Tinea cruris [Unknown]
  - Diabetes mellitus [Not Recovered/Not Resolved]
  - Rhinitis [Recovered/Resolved]
  - Blood glucose increased [Unknown]
  - Conjunctivitis [Recovered/Resolved]
  - Blood cholesterol abnormal [Unknown]

NARRATIVE: CASE EVENT DATE: 19990412
